FAERS Safety Report 14826241 (Version 2)
Quarter: 2018Q2

REPORT INFORMATION
  Report Type: Spontaneous
  Country: US (occurrence: US)
  Receive Date: 20180430
  Receipt Date: 20180509
  Transmission Date: 20180711
  Serious: No
  Sender: FDA-Public Use
  Company Number: US-LEO PHARMA-308656

PATIENT
  Age: 59 Year
  Sex: Male

DRUGS (2)
  1. PICATO [Suspect]
     Active Substance: INGENOL MEBUTATE
     Indication: PRODUCT USED FOR UNKNOWN INDICATION
     Route: 061
     Dates: start: 20180418, end: 20180419
  2. PICATO [Suspect]
     Active Substance: INGENOL MEBUTATE

REACTIONS (4)
  - Application site exfoliation [Not Recovered/Not Resolved]
  - Application site erosion [Unknown]
  - Incorrect dose administered [Unknown]
  - Application site erythema [Not Recovered/Not Resolved]

NARRATIVE: CASE EVENT DATE: 20180418
